FAERS Safety Report 9249339 (Version 1)
Quarter: 2013Q1

REPORT INFORMATION
  Report Type: Spontaneous
  Country: US (occurrence: None)
  Receive Date: 20130305
  Receipt Date: 20130305
  Transmission Date: 20140127
  Serious: Yes (Other)
  Sender: FDA-Public Use
  Company Number: 163-21880-12093158

PATIENT
  Age: 58 Year
  Sex: Female

DRUGS (4)
  1. REVLIMID [Suspect]
     Indication: PLASMA CELL MYELOMA
     Route: 048
     Dates: start: 201208, end: 201209
  2. DEXAMETHASONE (DEXAMETHASONE) [Concomitant]
  3. LISINOPRIL (LISINOPRIL) [Concomitant]
  4. ACTOS (PIOGLITAZONE) [Concomitant]

REACTIONS (1)
  - Muscle spasms [None]
